FAERS Safety Report 6954721-7 (Version None)
Quarter: 2010Q3

REPORT INFORMATION
  Report Type: 
  Country: None (occurrence: None)
  Receive Date: 20100829
  Receipt Date: 20080708
  Transmission Date: 20110219
  Serious: No
  Sender: FDA-Public Use
  Company Number: US-ALLERGAN-0808305US

PATIENT
  Sex: Female

DRUGS (6)
  1. FML [Suspect]
     Indication: EYELID IRRITATION
     Dosage: UNK, UNKNOWN
     Route: 061
     Dates: end: 20080601
  2. FML [Suspect]
     Indication: HYPERSENSITIVITY
  3. FML [Suspect]
     Indication: DERMATITIS
  4. LIPITOR [Concomitant]
  5. FOSAMAX [Concomitant]
  6. FORTICAL SPRAY [Concomitant]

REACTIONS (1)
  - INTRAOCULAR PRESSURE INCREASED [None]
